FAERS Safety Report 25423126 (Version 1)
Quarter: 2025Q2

REPORT INFORMATION
  Report Type: Spontaneous
  Country: US (occurrence: US)
  Receive Date: 20250611
  Receipt Date: 20250611
  Transmission Date: 20250717
  Serious: No
  Sender: PIERRE FABRE MEDICAMENT
  Company Number: US-PFM-2024-05849

PATIENT
  Age: 0 Year
  Sex: Male
  Weight: 12.4 kg

DRUGS (2)
  1. HEMANGEOL [Suspect]
     Active Substance: PROPRANOLOL HYDROCHLORIDE
     Indication: Haemangioma
     Dosage: 4.5 ML, BID (2/DAY)
     Dates: start: 20241024
  2. HEMANGEOL [Suspect]
     Active Substance: PROPRANOLOL HYDROCHLORIDE

REACTIONS (8)
  - Nasopharyngitis [Unknown]
  - Restlessness [Recovering/Resolving]
  - Illness [Unknown]
  - Viral infection [Unknown]
  - Sleep disorder [Unknown]
  - Diarrhoea [Unknown]
  - Product administered to patient of inappropriate age [Unknown]
  - Off label use [Unknown]

NARRATIVE: CASE EVENT DATE: 20241024
